FAERS Safety Report 20438068 (Version 6)
Quarter: 2022Q3

REPORT INFORMATION
  Report Type: Report from Study
  Country: FR (occurrence: FR)
  Receive Date: 20220207
  Receipt Date: 20220714
  Transmission Date: 20221027
  Serious: Yes (Death, Life-Threatening, Hospitalization, Other)
  Sender: FDA-Public Use
  Company Number: FR-Intas Spain-000450

PATIENT
  Age: 58 Year
  Sex: Male
  Weight: 106 kg

DRUGS (6)
  1. AMLODIPINE [Interacting]
     Active Substance: AMLODIPINE BESYLATE
     Dosage: UNK
     Route: 048
  2. ATORVASTATIN CALCIUM [Interacting]
     Active Substance: ATORVASTATIN CALCIUM
     Dosage: UNK
     Route: 048
  3. EPLERENONE [Interacting]
     Active Substance: EPLERENONE
     Dosage: UNK
     Route: 048
  4. APIXABAN [Interacting]
     Active Substance: APIXABAN
     Indication: Cerebrovascular accident prophylaxis
     Dosage: 5 MG, 2X/DAY
     Route: 048
  5. RAMIPRIL [Interacting]
     Active Substance: RAMIPRIL
     Dosage: UNK
     Route: 048
  6. BISOPROLOL [Interacting]
     Active Substance: BISOPROLOL
     Dosage: UNK
     Route: 048

REACTIONS (4)
  - Cardiogenic shock [Fatal]
  - Circulatory collapse [Unknown]
  - Drug interaction [Fatal]
  - Toxicity to various agents [Fatal]
